FAERS Safety Report 6717164-7 (Version None)
Quarter: 2010Q2

REPORT INFORMATION
  Report Type: 
  Country: None (occurrence: None)
  Receive Date: 20100505
  Receipt Date: 20100422
  Transmission Date: 20101027
  Serious: Yes (Hospitalization)
  Sender: FDA-Public Use
  Company Number: US-JNJFOC-20100401581

PATIENT
  Age: 87 Year
  Sex: Female
  Weight: 51.3 kg

DRUGS (12)
  1. DECITABINE           (DECITABINE) LYOPHILIZED [Suspect]
     Indication: ACUTE MYELOID LEUKAEMIA
     Dosage: 20 MG/M2, INTRAVENOUS
     Route: 042
     Dates: start: 20100227, end: 20100303
  2. DECITABINE           (DECITABINE) LYOPHILIZED [Suspect]
     Indication: ACUTE MYELOID LEUKAEMIA
     Dosage: 20 MG/M2, INTRAVENOUS
     Route: 042
     Dates: start: 20100329, end: 20100402
  3. CYTARABINE [Suspect]
     Indication: ACUTE MYELOID LEUKAEMIA
     Dosage: 20 MG/M2, SUBCUTANEOUS
     Route: 058
     Dates: start: 20100227, end: 20100303
  4. CYTARABINE [Suspect]
     Indication: ACUTE MYELOID LEUKAEMIA
     Dosage: 20 MG/M2, SUBCUTANEOUS
     Route: 058
     Dates: start: 20100329, end: 20100402
  5. GRANULOCYE COLONY STIMULATING FACTOR  (GRANULOCYTE COLONY STIMULATING [Suspect]
     Indication: ACUTE MYELOID LEUKAEMIA
     Dosage: 300 MG, SUBCUTANEOUS
     Route: 058
     Dates: start: 20100227, end: 20100303
  6. GRANULOCYE COLONY STIMULATING FACTOR  (GRANULOCYTE COLONY STIMULATING [Suspect]
     Indication: ACUTE MYELOID LEUKAEMIA
     Dosage: 300 MG, SUBCUTANEOUS
     Route: 058
     Dates: start: 20100329, end: 20100402
  7. PROPRANOLOL [Concomitant]
  8. PRILOSEC (OMPERAZOLE) [Concomitant]
  9. REGLAN [Concomitant]
  10. POTASSIUM CHLORIDE [Concomitant]
  11. VORICONAZOLE [Concomitant]
  12. NEUTRA PHOS (NEUTRA-PHOS) /00555301/ [Concomitant]

REACTIONS (10)
  - ANAEMIA [None]
  - CARDIAC FAILURE CONGESTIVE [None]
  - CONFUSIONAL STATE [None]
  - DYSPNOEA [None]
  - FUNGAL INFECTION [None]
  - HYPOXIA [None]
  - OXYGEN SATURATION DECREASED [None]
  - PLEURAL EFFUSION [None]
  - SYNCOPE [None]
  - THROMBOCYTOPENIA [None]
